FAERS Safety Report 6825074-X (Version None)
Quarter: 2010Q3

REPORT INFORMATION
  Report Type: 
  Country: None (occurrence: None)
  Receive Date: 20100708
  Receipt Date: 20070106
  Transmission Date: 20110219
  Serious: No
  Sender: FDA-Public Use
  Company Number: US-PFIZER INC-2007002609

PATIENT
  Sex: Female
  Weight: 70.31 kg

DRUGS (5)
  1. CHANTIX [Suspect]
     Indication: SMOKING CESSATION THERAPY
     Dates: start: 20061225
  2. NORVASC [Concomitant]
  3. ZYPREXA [Concomitant]
  4. CYMBALTA [Concomitant]
  5. SKELAXIN [Concomitant]

REACTIONS (3)
  - ABNORMAL DREAMS [None]
  - DIARRHOEA [None]
  - NAUSEA [None]
